FAERS Safety Report 25310121 (Version 3)
Quarter: 2025Q3

REPORT INFORMATION
  Report Type: Report from Study
  Country: US (occurrence: US)
  Receive Date: 20250514
  Receipt Date: 20250904
  Transmission Date: 20251021
  Serious: Yes (Other)
  Sender: INSMED
  Company Number: US-INSMED, INC.-2024-03020-US

PATIENT
  Sex: Female

DRUGS (2)
  1. ARIKAYCE [Suspect]
     Active Substance: AMIKACIN
     Indication: Mycobacterium avium complex infection
     Dosage: 590 MILLIGRAM, QD
     Route: 055
     Dates: start: 202312, end: 2024
  2. ARIKAYCE [Suspect]
     Active Substance: AMIKACIN
     Dosage: 590 MILLIGRAM, QOD
     Route: 055
     Dates: start: 2024, end: 2024

REACTIONS (14)
  - Cardiac disorder [Unknown]
  - Bronchitis [Unknown]
  - Laryngitis [Unknown]
  - Bronchial disorder [Recovering/Resolving]
  - Vocal cord disorder [Recovering/Resolving]
  - Oropharyngeal discomfort [Unknown]
  - Oropharyngeal pain [Recovering/Resolving]
  - Adverse event [Unknown]
  - Weight decreased [Unknown]
  - Throat irritation [Not Recovered/Not Resolved]
  - Aphonia [Unknown]
  - Drug ineffective [Unknown]
  - Product dose omission issue [Unknown]
  - Off label use [Unknown]
